FAERS Safety Report 4674119-4 (Version None)
Quarter: 2005Q2

REPORT INFORMATION
  Report Type: 
  Country: None (occurrence: None)
  Receive Date: 20050524
  Receipt Date: 20050524
  Transmission Date: 20051028
  Serious: Yes (Other)
  Sender: FDA-Public Use
  Company Number: None

PATIENT
  Sex: Female
  Weight: 79.3795 kg

DRUGS (2)
  1. PAXIL [Suspect]
     Indication: GENERALISED ANXIETY DISORDER
     Dosage: 1   DAILY   ORAL
     Route: 048
     Dates: start: 20041001, end: 20050523
  2. PAXIL [Suspect]
     Indication: SOCIAL PHOBIA
     Dosage: 1   DAILY   ORAL
     Route: 048
     Dates: start: 20041001, end: 20050523

REACTIONS (3)
  - DEPRESSION [None]
  - DRUG DEPENDENCE [None]
  - DRUG WITHDRAWAL SYNDROME [None]
